FAERS Safety Report 10794647 (Version 1)
Quarter: 2015Q1

REPORT INFORMATION
  Report Type: Report from Study
  Country: US (occurrence: US)
  Receive Date: 20150213
  Receipt Date: 20150213
  Transmission Date: 20150721
  Serious: Yes (Death)
  Sender: FDA-Public Use
  Company Number: US-INTERMUNE, INC.-201502IM009603

PATIENT
  Age: 77 Year
  Sex: Male

DRUGS (27)
  1. ESBRIET [Suspect]
     Active Substance: PIRFENIDONE
     Route: 048
  2. NYSTATIN. [Concomitant]
     Active Substance: NYSTATIN
  3. MUCINEX [Concomitant]
     Active Substance: GUAIFENESIN
  4. XALATAN [Concomitant]
     Active Substance: LATANOPROST
  5. CHLORHEXIDINE [Concomitant]
     Active Substance: CHLORHEXIDINE
  6. SPIRIVA [Concomitant]
     Active Substance: TIOTROPIUM BROMIDE MONOHYDRATE
  7. VITAMIN B [Concomitant]
     Active Substance: VITAMIN B
  8. CALCIUM [Concomitant]
     Active Substance: CALCIUM
  9. VITAMIN D [Concomitant]
     Active Substance: CHOLECALCIFEROL
  10. SAW PALMETTO [Concomitant]
     Active Substance: SAW PALMETTO
  11. PLAVIX [Concomitant]
     Active Substance: CLOPIDOGREL BISULFATE
  12. ZETIA [Concomitant]
     Active Substance: EZETIMIBE
  13. METOPROLOL [Concomitant]
     Active Substance: METOPROLOL
  14. MUPIROCIN. [Concomitant]
     Active Substance: MUPIROCIN
  15. FLOMAX [Concomitant]
     Active Substance: TAMSULOSIN HYDROCHLORIDE
  16. AZELASTINE [Concomitant]
     Active Substance: AZELASTINE
  17. COENZYME Q10 [Concomitant]
     Active Substance: UBIDECARENONE
  18. ZOLPIDEM [Concomitant]
     Active Substance: ZOLPIDEM\ZOLPIDEM TARTRATE
  19. ASPIRIN. [Concomitant]
     Active Substance: ASPIRIN
  20. PRAVASTATIN [Concomitant]
     Active Substance: PRAVASTATIN\PRAVASTATIN SODIUM
  21. TAMSULOSIN [Concomitant]
     Active Substance: TAMSULOSIN
  22. BENZONATATE. [Concomitant]
     Active Substance: BENZONATATE
  23. PROVENTIL [Concomitant]
     Active Substance: ALBUTEROL
  24. NEXIUM [Concomitant]
     Active Substance: ESOMEPRAZOLE MAGNESIUM
  25. TRIAMCINOLONE [Concomitant]
     Active Substance: TRIAMCINOLONE
  26. ADVAIR HFA [Concomitant]
     Active Substance: FLUTICASONE PROPIONATE\SALMETEROL XINAFOATE
  27. THICK IT [Concomitant]

REACTIONS (1)
  - Death [Fatal]

NARRATIVE: CASE EVENT DATE: 20150110
